FAERS Safety Report 9790746 (Version 1)
Quarter: 2013Q4

REPORT INFORMATION
  Report Type: Report from Study
  Country: US (occurrence: US)
  Receive Date: 20131231
  Receipt Date: 20131231
  Transmission Date: 20140711
  Serious: Yes (Hospitalization)
  Sender: FDA-Public Use
  Company Number: US-ABBVIE-13P-163-1183670-00

PATIENT
  Age: 59 Year
  Sex: Female
  Weight: 74.91 kg

DRUGS (11)
  1. HUMIRA [Suspect]
     Indication: RHEUMATOID ARTHRITIS
     Dates: start: 2004, end: 201008
  2. FAMOTIDINE [Concomitant]
     Indication: GASTRIC DISORDER
  3. FENOFIBRATE [Concomitant]
     Indication: BLOOD CHOLESTEROL INCREASED
  4. FLOVENT [Concomitant]
     Indication: ASTHMA
  5. ALBUTEROL [Concomitant]
     Indication: ASTHMA
  6. LEVOTHYROXINE [Concomitant]
     Indication: HYPOTHYROIDISM
  7. MAGNESIUM [Concomitant]
     Indication: MINERAL SUPPLEMENTATION
  8. METFORMIN [Concomitant]
     Indication: DIABETES MELLITUS
  9. NASONEX [Concomitant]
     Indication: HYPERSENSITIVITY
  10. PRO-AIRE [Concomitant]
     Indication: ASTHMA
  11. TRAMADOL [Concomitant]
     Indication: BACK PAIN

REACTIONS (2)
  - Gastric ulcer perforation [Recovered/Resolved]
  - Rheumatoid arthritis [Not Recovered/Not Resolved]
